FAERS Safety Report 11073624 (Version 1)
Quarter: 2015Q2

REPORT INFORMATION
  Report Type: Spontaneous
  Country: US (occurrence: US)
  Receive Date: 20150428
  Receipt Date: 20150428
  Transmission Date: 20150821
  Serious: No
  Sender: FDA-Public Use
  Company Number: US-009507513-1504USA005159

PATIENT
  Sex: Female

DRUGS (1)
  1. NEXPLANON [Suspect]
     Active Substance: ETONOGESTREL
     Dosage: 1 IMPLANT/EVERY 3 YEARS
     Route: 059

REACTIONS (5)
  - Mood altered [Unknown]
  - Vaginal haemorrhage [Unknown]
  - Product quality issue [Unknown]
  - Medical device complication [Not Recovered/Not Resolved]
  - Abdominal pain [Unknown]
